FAERS Safety Report 12838572 (Version 4)
Quarter: 2016Q4

REPORT INFORMATION
  Report Type: Spontaneous
  Country: DE (occurrence: DE)
  Receive Date: 20161012
  Receipt Date: 20161223
  Transmission Date: 20170207
  Serious: Yes (Other)
  Sender: FDA-Public Use
  Company Number: DE-BEH-2016074091

PATIENT
  Age: 13 Day
  Sex: Male

DRUGS (4)
  1. HAEMOCOMPLETTAN P [Suspect]
     Active Substance: FIBRINOGEN HUMAN
     Indication: HAEMORRHAGE
     Dosage: 300 MG, 1X
     Route: 042
     Dates: start: 20160403
  2. HUMAN-ALBUMIN 20% BEHRING [Suspect]
     Active Substance: ALBUMIN HUMAN
     Indication: HAEMORRHAGE
     Dosage: 12 ML, 1X
     Route: 042
     Dates: start: 20160404
  3. HAEMOCOMPLETTAN P [Suspect]
     Active Substance: FIBRINOGEN HUMAN
     Indication: COAGULOPATHY
  4. BLOOD AND RELATED PRODUCTS [Suspect]
     Active Substance: HUMAN BLOOD CELLS
     Indication: HAEMORRHAGE
     Dosage: UNK
     Route: 042
     Dates: start: 20160402, end: 20160403

REACTIONS (2)
  - Hyperthyroidism [Recovered/Resolved]
  - Thyroid stimulating immunoglobulin increased [Recovered/Resolved]

NARRATIVE: CASE EVENT DATE: 20160415
